FAERS Safety Report 4945951-4 (Version None)
Quarter: 2006Q1

REPORT INFORMATION
  Report Type: 
  Country: None (occurrence: None)
  Receive Date: 20060206
  Receipt Date: 20050920
  Transmission Date: 20060701
  Serious: No
  Sender: FDA-Public Use
  Company Number: 05P-163-0311542-00

PATIENT
  Age: 14 Year
  Sex: Female
  Weight: 92 kg

DRUGS (1)
  1. NIMBEX [Suspect]
     Indication: ANAESTHESIA
     Dosage: INTRAVENOUS
     Route: 042
     Dates: start: 20050920, end: 20050920

REACTIONS (1)
  - ANAPHYLACTIC REACTION [None]
